FAERS Safety Report 22377331 (Version 1)
Quarter: 2023Q2

REPORT INFORMATION
  Report Type: Spontaneous
  Country: US (occurrence: US)
  Receive Date: 20230529
  Receipt Date: 20230529
  Transmission Date: 20230722
  Serious: Yes (Other)
  Sender: FDA-Public Use
  Company Number: US-CASPERPHARMA-US-2023RISSPO00076

PATIENT
  Age: 38 Year
  Sex: Female
  Weight: 97 kg

DRUGS (2)
  1. HYDROCORTISONE\NEOMYCIN\POLYMYXIN B [Suspect]
     Active Substance: HYDROCORTISONE\NEOMYCIN\POLYMYXIN B
     Indication: Ear infection
     Dates: start: 20230505, end: 20230505
  2. AMOXICILLIN [Concomitant]
     Active Substance: AMOXICILLIN
     Indication: Product used for unknown indication
     Route: 065

REACTIONS (3)
  - Deafness [Not Recovered/Not Resolved]
  - Tympanic membrane perforation [Not Recovered/Not Resolved]
  - Middle ear effusion [Not Recovered/Not Resolved]

NARRATIVE: CASE EVENT DATE: 20230505
